FAERS Safety Report 8381252-2 (Version None)
Quarter: 2012Q2

REPORT INFORMATION
  Report Type: 
  Country: None (occurrence: None)
  Receive Date: 20120523
  Receipt Date: 20120514
  Transmission Date: 20120825
  Serious: Yes (Death)
  Sender: FDA-Public Use
  Company Number: US-VALEANT-2012VX002291

PATIENT

DRUGS (2)
  1. FLUOROURACIL [Suspect]
     Route: 065
  2. THERAPEUTIC RADIOPHARMACEUTICALS [Suspect]
     Route: 065

REACTIONS (1)
  - SUDDEN DEATH [None]
